FAERS Safety Report 7797178-9 (Version None)
Quarter: 2011Q4

REPORT INFORMATION
  Report Type: 
  Country: None (occurrence: None)
  Receive Date: 20111005
  Receipt Date: 20110928
  Transmission Date: 20120403
  Serious: Yes (Death)
  Sender: FDA-Public Use
  Company Number: PHHY2011SV86123

PATIENT
  Age: 88 Year
  Sex: Male

DRUGS (1)
  1. EXFORGE [Suspect]
     Dosage: 160 MG OF VALS AND 10 MG OF AMLO

REACTIONS (1)
  - DEATH [None]
